FAERS Safety Report 7918542-0 (Version None)
Quarter: 2011Q4

REPORT INFORMATION
  Report Type: 
  Country: None (occurrence: None)
  Receive Date: 20111116
  Receipt Date: 20111101
  Transmission Date: 20120403
  Serious: Yes (Hospitalization)
  Sender: FDA-Public Use
  Company Number: US-WATSON-2011-16789

PATIENT
  Age: 88 Year
  Sex: Female

DRUGS (4)
  1. FENTANYL-100 [Suspect]
     Dosage: 1 PATCH EVERY 48 HOURS
     Route: 062
     Dates: start: 20110301, end: 20111006
  2. FENTANYL-25 [Suspect]
     Indication: OSTEOARTHRITIS
     Dosage: 1 PATCH EVERY 48 HOURS
     Route: 062
     Dates: start: 20111007
  3. FENTANYL-100 [Suspect]
     Indication: OSTEOARTHRITIS
     Dosage: 1 PATCH EVERY 48 HOURS
     Route: 062
     Dates: start: 20111007
  4. FENTANYL-25 [Suspect]
     Dosage: 1 PATCH EVERY 48 HOURS
     Route: 062
     Dates: start: 20110301, end: 20111006

REACTIONS (5)
  - PNEUMONIA [None]
  - DYSPNOEA [None]
  - ANXIETY [None]
  - DRUG ADMINISTRATION ERROR [None]
  - BURNING SENSATION [None]
